FAERS Safety Report 9633694 (Version 3)
Quarter: 2013Q4

REPORT INFORMATION
  Report Type: Spontaneous
  Country: US (occurrence: US)
  Receive Date: 20131021
  Receipt Date: 20131223
  Transmission Date: 20140711
  Serious: No
  Sender: FDA-Public Use
  Company Number: US-PFIZER INC-2013297944

PATIENT
  Age: 71 Year
  Sex: Female

DRUGS (8)
  1. PROCARDIA XL [Suspect]
     Dosage: 60 MG, 2X/DAY
  2. ATENOLOL [Concomitant]
     Dosage: 50 MG, 2X/DAY
  3. LASIX [Concomitant]
     Dosage: 20 MG, 1X/DAY
  4. SYNTHROID [Concomitant]
     Dosage: 125 UG, 1X/DAY
  5. SIMVASTATIN [Concomitant]
     Dosage: 40 MG, UNK
  6. VISTARIL [Concomitant]
     Dosage: 50 MG, 1X/DAY
  7. ZOLOFT [Concomitant]
     Dosage: 50 MG, 1X/DAY
  8. VITAMIN D3 [Concomitant]
     Dosage: 2000 IU, 1X/DAY

REACTIONS (2)
  - Medication error [Unknown]
  - Feeling abnormal [Unknown]
